FAERS Safety Report 8490674-0 (Version None)
Quarter: 2012Q3

REPORT INFORMATION
  Report Type: 
  Country: None (occurrence: None)
  Receive Date: 20120705
  Receipt Date: 20120702
  Transmission Date: 20120928
  Serious: Yes (Death)
  Sender: FDA-Public Use
  Company Number: AR-BRISTOL-MYERS SQUIBB COMPANY-16736142

PATIENT

DRUGS (1)
  1. YERVOY [Suspect]
     Dosage: NO OF INF 2

REACTIONS (1)
  - DEATH [None]
